FAERS Safety Report 10101624 (Version 2)
Quarter: 2014Q2

REPORT INFORMATION
  Report Type: Report from Study
  Country: FR (occurrence: FR)
  Receive Date: 20140424
  Receipt Date: 20140424
  Transmission Date: 20141212
  Serious: Yes (Hospitalization, Other)
  Sender: FDA-Public Use
  Company Number: FR-ROCHE-1382754

PATIENT
  Sex: Male
  Weight: 78 kg

DRUGS (11)
  1. RITUXIMAB [Suspect]
     Indication: MALIGNANT LYMPHOID NEOPLASM
     Route: 042
     Dates: start: 20130430, end: 20130716
  2. BUSILVEX [Suspect]
     Indication: MALIGNANT LYMPHOID NEOPLASM
     Route: 042
     Dates: start: 20130817, end: 20130818
  3. BUSILVEX [Suspect]
     Route: 042
     Dates: start: 20130819, end: 20130819
  4. ENDOXAN [Suspect]
     Indication: MALIGNANT LYMPHOID NEOPLASM
     Route: 042
     Dates: start: 20130820, end: 20130821
  5. THIOTEPA [Suspect]
     Indication: MALIGNANT LYMPHOID NEOPLASM
     Route: 042
     Dates: start: 20130814, end: 20130816
  6. KEPPRA [Concomitant]
     Route: 065
  7. LEXOMIL [Concomitant]
     Dosage: AT REQUEST
     Route: 065
  8. LORAMYC [Concomitant]
     Route: 065
  9. MOTILIUM [Concomitant]
     Dosage: AT REQUEST
     Route: 065
  10. CORDARONE [Concomitant]
  11. DIGOXINE [Concomitant]

REACTIONS (3)
  - Lung disorder [Recovered/Resolved]
  - Intestinal obstruction [Recovering/Resolving]
  - Neutropenic colitis [Recovering/Resolving]
